FAERS Safety Report 5126058-2 (Version None)
Quarter: 2006Q4

REPORT INFORMATION
  Report Type: 
  Country: None (occurrence: None)
  Receive Date: 20061010
  Receipt Date: 20061010
  Transmission Date: 20070319
  Serious: Yes (Life-Threatening, Hospitalization, Disabling, Other)
  Sender: FDA-Public Use
  Company Number: None

PATIENT
  Sex: Female
  Weight: 35.3806 kg

DRUGS (2)
  1. LEXAPRO [Suspect]
  2. LEXAPRO [Suspect]

REACTIONS (5)
  - ATTENTION-SEEKING BEHAVIOUR [None]
  - COMA [None]
  - POST-TRAUMATIC STRESS DISORDER [None]
  - SUICIDAL IDEATION [None]
  - SUICIDE ATTEMPT [None]
